FAERS Safety Report 4861632-X (Version None)
Quarter: 2005Q4

REPORT INFORMATION
  Report Type: 
  Country: None (occurrence: None)
  Receive Date: 20051220
  Receipt Date: 20051125
  Transmission Date: 20060501
  Serious: Yes (Other)
  Sender: FDA-Public Use
  Company Number: PHBS2005JP17496

PATIENT

DRUGS (2)
  1. RITALIN [Suspect]
     Indication: DEPRESSION
     Dosage: 40 MG/D
     Route: 048
  2. AMOBAN [Concomitant]
     Dosage: 10 MG/D
     Route: 048

REACTIONS (5)
  - EXTRAPYRAMIDAL DISORDER [None]
  - GAIT DISTURBANCE [None]
  - MOVEMENT DISORDER [None]
  - PARKINSON'S DISEASE [None]
  - TREMOR [None]
